FAERS Safety Report 4883073-1 (Version None)
Quarter: 2006Q1

REPORT INFORMATION
  Report Type: 
  Country: None (occurrence: None)
  Receive Date: 20060118
  Receipt Date: 20060105
  Transmission Date: 20060701
  Serious: Yes (Death)
  Sender: FDA-Public Use
  Company Number: CH-AVENTIS-200610151GDDC

PATIENT
  Age: 43 Year
  Sex: Female

DRUGS (6)
  1. ARAVA [Suspect]
     Route: 048
     Dates: start: 20050726, end: 20050728
  2. ARAVA [Suspect]
     Route: 048
     Dates: start: 20050729, end: 20050929
  3. METHOTREXATE [Suspect]
     Indication: RHEUMATOID ARTHRITIS
     Route: 048
     Dates: start: 20020326, end: 20050201
  4. METHOTREXATE [Suspect]
     Route: 048
     Dates: end: 20050929
  5. SPIRICORT [Suspect]
     Dosage: DOSE: 5 - 7.5
     Route: 048
     Dates: start: 20050201, end: 20050929
  6. TRIAMCORT                               /SCH/ [Concomitant]
     Indication: ARTHRITIS
     Dosage: ROUTE: INTRAARTICULAR, INTRASYNOVIAL
     Route: 050
     Dates: start: 20050919, end: 20050919

REACTIONS (4)
  - GLASGOW COMA SCALE ABNORMAL [None]
  - INTRAVENTRICULAR HAEMORRHAGE [None]
  - LOSS OF CONSCIOUSNESS [None]
  - SUBARACHNOID HAEMORRHAGE [None]
